FAERS Safety Report 4538968-5 (Version None)
Quarter: 2004Q4

REPORT INFORMATION
  Report Type: 
  Country: None (occurrence: None)
  Receive Date: 20041222
  Receipt Date: 20041207
  Transmission Date: 20050328
  Serious: Yes (Hospitalization, Other)
  Sender: FDA-Public Use
  Company Number: USA041082682

PATIENT
  Age: 69 Year
  Sex: Female
  Weight: 74 kg

DRUGS (16)
  1. FORTEO [Suspect]
     Indication: OSTEOPOROSIS
     Dosage: 20 UG/1 DAY
  2. PLAVIX [Concomitant]
  3. ELAVIL [Concomitant]
  4. NEXIUM [Concomitant]
  5. WELLBUTRIN SR [Concomitant]
  6. NORVASC [Concomitant]
  7. PRAVACHOL [Concomitant]
  8. LABETALOL [Concomitant]
  9. NEURONTIN (GABAPENTIN PFIZER) [Concomitant]
  10. PERCOCET [Concomitant]
  11. CATAPRES-TTS-1 [Concomitant]
  12. K-DUR 10 [Concomitant]
  13. COMBIVENT [Concomitant]
  14. AMBIEN [Concomitant]
  15. FUROSEMIDE [Concomitant]
  16. RHINOCORT AQUA (BUDESONIDE) [Concomitant]

REACTIONS (5)
  - ASTHENIA [None]
  - LOSS OF CONSCIOUSNESS [None]
  - MEDICATION ERROR [None]
  - PHARMACEUTICAL PRODUCT COMPLAINT [None]
  - PNEUMONIA [None]
